FAERS Safety Report 14615476 (Version 1)
Quarter: 2018Q1

REPORT INFORMATION
  Report Type: Spontaneous
  Country: US (occurrence: US)
  Receive Date: 20180309
  Receipt Date: 20180309
  Transmission Date: 20180509
  Serious: No
  Sender: FDA-Public Use
  Company Number: US-BAUSCH-BL-2017-010311

PATIENT
  Age: 80 Year
  Sex: Female

DRUGS (4)
  1. PYRIDOSTIGMINE BROMIDE TABLETS 60MG [Suspect]
     Active Substance: PYRIDOSTIGMINE BROMIDE
     Indication: MYASTHENIA GRAVIS
     Dosage: 3 TABLETS IN THE MORNING, 2 TABLETS AT 10:30 AM, 3 TABLETS AT LUNCH TIME, 2 TABLETS AT 2:30 PM, AND
     Route: 048
  2. PYRIDOSTIGMINE BROMIDE TABLETS 60MG [Suspect]
     Active Substance: PYRIDOSTIGMINE BROMIDE
     Dosage: 3 TABLETS IN THE MORNING, 2 TABLETS AT 10:30 AM, 3 TABLETS AT LUNCH TIME, 2 TABLETS AT 2:30 PM, 3 TA
     Route: 048
  3. PYRIDOSTIGMINE BROMIDE EXTENDED RELEASE TABLETS [Suspect]
     Active Substance: PYRIDOSTIGMINE BROMIDE
     Indication: MYASTHENIA GRAVIS
     Dosage: AT BEDTIME
     Route: 048
  4. PYRIDOSTIGMINE BROMIDE TABLETS 60MG [Suspect]
     Active Substance: PYRIDOSTIGMINE BROMIDE
     Dosage: 3 TABLETS IN THE MORNING, 2 TABLETS AT 10:30 AM, 3 TABLETS AT LUNCH TIME, 2 TABLETS AT 2:30 PM, 3 TA
     Route: 048
     Dates: start: 2017

REACTIONS (4)
  - Abdominal pain upper [Unknown]
  - Diarrhoea [Unknown]
  - Drug ineffective [Unknown]
  - Asthenia [Unknown]
